FAERS Safety Report 24216745 (Version 1)
Quarter: 2024Q3

REPORT INFORMATION
  Report Type: Report from Study
  Country: US (occurrence: US)
  Receive Date: 20240816
  Receipt Date: 20240816
  Transmission Date: 20241017
  Serious: Yes (Other)
  Sender: TEVA
  Company Number: US-TEVA-VS-3156027

PATIENT
  Age: 76 Year
  Sex: Male

DRUGS (1)
  1. AUSTEDO [Suspect]
     Active Substance: DEUTETRABENAZINE
     Indication: Huntington^s disease
     Route: 065
     Dates: start: 20231101, end: 2024

REACTIONS (12)
  - Disease progression [Unknown]
  - Depression [Unknown]
  - Memory impairment [Unknown]
  - Suicidal ideation [Unknown]
  - Wheelchair user [Unknown]
  - Dyskinesia [Unknown]
  - Thinking abnormal [Unknown]
  - Gait disturbance [Unknown]
  - Sleep disorder [Unknown]
  - Agitation [Unknown]
  - Anger [Unknown]
  - Feeling abnormal [Unknown]

NARRATIVE: CASE EVENT DATE: 20240101
